FAERS Safety Report 6939361-8 (Version None)
Quarter: 2010Q3

REPORT INFORMATION
  Report Type: 
  Country: None (occurrence: None)
  Receive Date: 20100824
  Receipt Date: 20100812
  Transmission Date: 20110219
  Serious: Yes (Hospitalization)
  Sender: FDA-Public Use
  Company Number: US-BRISTOL-MYERS SQUIBB COMPANY-15239171

PATIENT
  Age: 62 Year
  Sex: Male

DRUGS (3)
  1. MDX-1105 [Suspect]
     Indication: MALIGNANT MELANOMA
     Dates: start: 20100208, end: 20100728
  2. PRAVACHOL [Suspect]
     Dates: start: 20080101, end: 20100812
  3. TRICOR [Suspect]
     Dates: start: 20090501, end: 20100812

REACTIONS (1)
  - TRANSAMINASES INCREASED [None]
